FAERS Safety Report 8377292-X (Version None)
Quarter: 2012Q2

REPORT INFORMATION
  Report Type: 
  Country: None (occurrence: None)
  Receive Date: 20120522
  Receipt Date: 20120507
  Transmission Date: 20120825
  Serious: No
  Sender: FDA-Public Use
  Company Number: US-ASTRAZENECA-2012SE24535

PATIENT
  Age: 51 Year
  Sex: Female

DRUGS (3)
  1. NEXIUM [Suspect]
     Route: 048
  2. PRILOSEC [Suspect]
     Dosage: GENERIC
     Route: 048
  3. PRILOSEC [Suspect]
     Route: 048

REACTIONS (9)
  - VOMITING [None]
  - FEELING ABNORMAL [None]
  - OESOPHAGEAL DISORDER [None]
  - ABDOMINAL DISCOMFORT [None]
  - DRUG INEFFECTIVE [None]
  - ROAD TRAFFIC ACCIDENT [None]
  - GASTRIC DISORDER [None]
  - APHAGIA [None]
  - INTENTIONAL DRUG MISUSE [None]
